FAERS Safety Report 13565608 (Version 1)
Quarter: 2017Q2

REPORT INFORMATION
  Report Type: Spontaneous
  Country: US (occurrence: US)
  Receive Date: 20170519
  Receipt Date: 20170519
  Transmission Date: 20170830
  Serious: No
  Sender: FDA-Public Use
  Company Number: US-BION-20160199

PATIENT
  Age: 29 Year
  Sex: Female
  Weight: 63.5 kg

DRUGS (1)
  1. MOTRIN IB [Suspect]
     Active Substance: IBUPROFEN
     Indication: EAR PAIN
     Dosage: 2 DOSAGE FORMS DAILY
     Route: 048
     Dates: start: 20160529, end: 20160529

REACTIONS (5)
  - Product use in unapproved indication [Recovered/Resolved]
  - Product odour abnormal [Unknown]
  - Poor quality drug administered [Recovered/Resolved]
  - Abdominal pain upper [Recovered/Resolved]
  - Incorrect drug administration duration [Unknown]

NARRATIVE: CASE EVENT DATE: 20160529
